FAERS Safety Report 25751033 (Version 1)
Quarter: 2025Q3

REPORT INFORMATION
  Report Type: Spontaneous
  Country: US (occurrence: None)
  Receive Date: 20250830
  Receipt Date: 20250830
  Transmission Date: 20251020
  Serious: Yes (Hospitalization)
  Sender: FDA-CTU
  Company Number: None

PATIENT
  Age: 69 Year
  Sex: Female

DRUGS (10)
  1. HUMIRA [Suspect]
     Active Substance: ADALIMUMAB
     Indication: Rheumatoid arthritis
     Route: 058
     Dates: start: 20221230
  2. CYMBALTA CAP 30MG [Concomitant]
  3. CYMBALTA CAP 60MG [Concomitant]
  4. HUMIRA [Concomitant]
     Active Substance: ADALIMUMAB
  5. ACETAMINOPHEN\HYDROCODONE [Concomitant]
     Active Substance: ACETAMINOPHEN\HYDROCODONE
  6. LEVOTHYROXIN TAB 150MCG [Concomitant]
  7. LEVOTHYROXIN TAB 25MCG [Concomitant]
  8. OXYCODONE TAB 15MG [Concomitant]
  9. RELISTOR TAB 150MG [Concomitant]
  10. TIZANIDINE HYDROCHLORIDE [Concomitant]
     Active Substance: TIZANIDINE HYDROCHLORIDE

REACTIONS (2)
  - Gastric ulcer [None]
  - Intentional dose omission [None]

NARRATIVE: CASE EVENT DATE: 20250730
